FAERS Safety Report 20459645 (Version 1)
Quarter: 2022Q1

REPORT INFORMATION
  Report Type: Spontaneous
  Country: US (occurrence: US)
  Receive Date: 20220211
  Receipt Date: 20220211
  Transmission Date: 20220423
  Serious: No
  Sender: FDA-Public Use
  Company Number: US-AMGEN-USASP2022019734

PATIENT

DRUGS (2)
  1. BEVACIZUMAB [Suspect]
     Active Substance: BEVACIZUMAB
     Indication: Neovascular age-related macular degeneration
     Dosage: 2.5 MILLIGRAM
  2. TETRACAINE [Concomitant]
     Active Substance: TETRACAINE

REACTIONS (2)
  - Off label use [Unknown]
  - Intraocular pressure increased [Unknown]
